FAERS Safety Report 15898678 (Version 3)
Quarter: 2019Q1

REPORT INFORMATION
  Report Type: Spontaneous
  Country: RU (occurrence: RU)
  Receive Date: 20190201
  Receipt Date: 20190319
  Transmission Date: 20190417
  Serious: Yes (Hospitalization, Other)
  Sender: FDA-Public Use
  Company Number: RU-ACCORD-104280

PATIENT
  Age: 43 Year
  Sex: Male

DRUGS (1)
  1. METHOTREXATE. [Suspect]
     Active Substance: METHOTREXATE
     Indication: DERMATITIS ATOPIC
     Dosage: 10 MG WEEKLY
     Dates: start: 20150912

REACTIONS (1)
  - Kaposi^s varicelliform eruption [Recovered/Resolved]

NARRATIVE: CASE EVENT DATE: 20150917
